FAERS Safety Report 7413265-9 (Version None)
Quarter: 2011Q2

REPORT INFORMATION
  Report Type: 
  Country: None (occurrence: None)
  Receive Date: 20110413
  Receipt Date: 20110407
  Transmission Date: 20111010
  Serious: Yes (Other)
  Sender: FDA-Public Use
  Company Number: ES-PFIZER INC-2011077789

PATIENT
  Age: 41 Year
  Sex: Female

DRUGS (9)
  1. ATARAX [Interacting]
     Dosage: 25 MG, 1X/DAY
     Route: 048
     Dates: start: 20091001, end: 20110204
  2. IBUPROFEN [Concomitant]
  3. LYRICA [Suspect]
     Dosage: 150 MG, 2X/DAY
     Route: 048
     Dates: start: 20100917
  4. ZOLPIDEM [Concomitant]
     Dosage: 10 MG, 1X/DAY
  5. CHLORTHALIDONE [Concomitant]
     Dosage: 50 MG, 1X/DAY
  6. DULOXETINE HYDROCHLORIDE [Interacting]
     Dosage: 60 MG, 1X/DAY
     Route: 048
     Dates: start: 20100917
  7. PLANTABEN [Concomitant]
     Dosage: 3.5 MG, 2X/DAY
  8. OMEPRAZOLE [Concomitant]
     Dosage: 20 MG, 1X/DAY
  9. ZYTRAM [Interacting]
     Indication: INTERVERTEBRAL DISC PROTRUSION
     Dosage: 200 MG, 1X/DAY
     Route: 048
     Dates: start: 20101205

REACTIONS (2)
  - DRUG INTERACTION [None]
  - MYOCLONUS [None]
